FAERS Safety Report 19927137 (Version 3)
Quarter: 2024Q2

REPORT INFORMATION
  Report Type: Other
  Country: US (occurrence: None)
  Receive Date: 20211007
  Receipt Date: 20240510
  Transmission Date: 20240716
  Serious: Yes (Life-Threatening, Other)
  Sender: FDA-Public Use
  Company Number: US-ROCHE-2926423

PATIENT
  Sex: Male
  Weight: 121.67 kg

DRUGS (18)
  1. CELLCEPT [Suspect]
     Active Substance: MYCOPHENOLATE MOFETIL
     Indication: Heart transplant
     Dosage: TAKE 1 CAPSULE BY MOUTH 2 TIMES DAILY
     Route: 048
     Dates: start: 2006
  2. ATIVAN [Concomitant]
     Active Substance: LORAZEPAM
     Indication: Anxiety
     Dosage: AS NEEDED
  3. CALCIUM CITRATE [Concomitant]
     Active Substance: CALCIUM CITRATE
     Dosage: 315/250 MG PER TABLET, 2 TABLETS
     Route: 048
     Dates: start: 2006
  4. COLCHICINE [Concomitant]
     Active Substance: COLCHICINE
     Indication: Gout
     Dosage: 2 TABLETS
     Route: 048
  5. ASPIRIN [Concomitant]
     Active Substance: ASPIRIN
     Route: 048
     Dates: start: 2006
  6. DRISDOL [Concomitant]
     Active Substance: ERGOCALCIFEROL
     Indication: Vitamin D deficiency
     Dosage: 50,000 UNITS WEEKLY
  7. TACROLIMUS [Concomitant]
     Active Substance: TACROLIMUS
     Indication: Transplant rejection
     Dates: start: 2006
  8. TACROLIMUS [Concomitant]
     Active Substance: TACROLIMUS
     Indication: Immunosuppression
  9. SODIUM BICARBONATE [Concomitant]
     Active Substance: SODIUM BICARBONATE
  10. ALLOPURINOL [Concomitant]
     Active Substance: ALLOPURINOL
  11. CHLORTHALIDONE [Concomitant]
     Active Substance: CHLORTHALIDONE
  12. LAMICTAL [Concomitant]
     Active Substance: LAMOTRIGINE
     Dosage: 250 MG IN THE MORNING AND 300 MG IN THE EVENING
  13. SIROLIMUS [Concomitant]
     Active Substance: SIROLIMUS
     Indication: Immunosuppression
     Dosage: 1 MG TABLET, 2 MG ONCE DAILY
     Dates: start: 202103
  14. DOXAZOSIN [Concomitant]
     Active Substance: DOXAZOSIN MESYLATE
     Indication: Hypertension
     Dosage: MG TABLET, 2 TABLETS EVERY NIGHT
  15. APIXABAN [Concomitant]
     Active Substance: APIXABAN
     Indication: Atrial fibrillation
  16. AMLODIPINE [Concomitant]
     Active Substance: AMLODIPINE BESYLATE
     Indication: Hypertension
     Dosage: 5 MG TABLET, 10 MG BY MOUTH ONCE DAILY
     Route: 048
  17. LABETALOL [Concomitant]
     Active Substance: LABETALOL\LABETALOL HYDROCHLORIDE
     Indication: Hypertension
     Dosage: 200 MG TABLET, 100 MG BY MOUTH THREE TIMES DAILY
     Route: 048
  18. PRAVASTATIN [Concomitant]
     Active Substance: PRAVASTATIN
     Dates: start: 2006

REACTIONS (5)
  - Renal disorder [Unknown]
  - Off label use [Unknown]
  - Cerebrovascular accident [Unknown]
  - Chronic kidney disease [Unknown]
  - Graft complication [Unknown]

NARRATIVE: CASE EVENT DATE: 20110101
